FAERS Safety Report 10073175 (Version 2)
Quarter: 2014Q2

REPORT INFORMATION
  Report Type: Spontaneous
  Country: DE (occurrence: DE)
  Receive Date: 20140411
  Receipt Date: 20140430
  Transmission Date: 20141212
  Serious: Yes (Disabling)
  Sender: FDA-Public Use
  Company Number: DE-GALDERMA-DE14001222

PATIENT
  Age: 52 Year
  Sex: Female

DRUGS (1)
  1. MIRVASO [Suspect]
     Indication: ROSACEA
     Dosage: 0.33%
     Route: 061
     Dates: start: 20140321, end: 20140322

REACTIONS (4)
  - Rash pustular [Recovered/Resolved]
  - Skin induration [Recovered/Resolved]
  - Condition aggravated [Recovered/Resolved]
  - Erythema [Recovered/Resolved]
